FAERS Safety Report 6993021-6 (Version None)
Quarter: 2010Q3

REPORT INFORMATION
  Report Type: 
  Country: None (occurrence: None)
  Receive Date: 20100916
  Receipt Date: 20100916
  Transmission Date: 20110219
  Serious: Yes (Other)
  Sender: FDA-Public Use
  Company Number: None

PATIENT
  Age: 82 Year
  Sex: Female
  Weight: 69.8539 kg

DRUGS (1)
  1. PHENERGAN [Suspect]
     Indication: NAUSEA
     Dosage: ONCE IV DRIP
     Route: 041
     Dates: start: 20100904, end: 20100904

REACTIONS (5)
  - ANXIETY [None]
  - HALLUCINATION [None]
  - MALAISE [None]
  - NIGHTMARE [None]
  - THINKING ABNORMAL [None]
